FAERS Safety Report 6887223-7 (Version None)
Quarter: 2010Q3

REPORT INFORMATION
  Report Type: 
  Country: None (occurrence: None)
  Receive Date: 20100730
  Receipt Date: 20100720
  Transmission Date: 20110219
  Serious: Yes (Hospitalization)
  Sender: FDA-Public Use
  Company Number: MT-ABBOTT-10P-103-0658843-00

PATIENT
  Age: 50 Year
  Sex: Female

DRUGS (6)
  1. EPILIM CHRONO [Suspect]
     Indication: DEPRESSION
     Dosage: DAILY
     Route: 048
     Dates: start: 20100526, end: 20100605
  2. CLOMIPRAMINE [Concomitant]
     Indication: PRODUCT USED FOR UNKNOWN INDICATION
  3. PAXETIN [Concomitant]
     Indication: PRODUCT USED FOR UNKNOWN INDICATION
  4. BROMAZEPAM [Concomitant]
     Indication: PRODUCT USED FOR UNKNOWN INDICATION
  5. PERINDOPRIL ERBUMINE [Concomitant]
     Indication: PRODUCT USED FOR UNKNOWN INDICATION
  6. PRILOSEC [Concomitant]
     Indication: PRODUCT USED FOR UNKNOWN INDICATION

REACTIONS (6)
  - BLOOD PRESSURE DECREASED [None]
  - HEPATITIS [None]
  - LETHARGY [None]
  - LIVER FUNCTION TEST ABNORMAL [None]
  - PYREXIA [None]
  - SYNCOPE [None]
